FAERS Safety Report 8810613 (Version 5)
Quarter: 2014Q1

REPORT INFORMATION
  Report Type: Spontaneous
  Country: TR (occurrence: TR)
  Receive Date: 20120927
  Receipt Date: 20140224
  Transmission Date: 20141002
  Serious: Yes (Hospitalization, Other)
  Sender: FDA-Public Use
  Company Number: TR-AMGEN-TURSP2012015514

PATIENT
  Age: 28 Year
  Sex: Female
  Weight: 95 kg

DRUGS (4)
  1. ENBREL [Suspect]
     Indication: PSORIATIC ARTHROPATHY
     Dosage: 50 MG, WEEKLY
     Route: 065
     Dates: start: 20100614, end: 20110404
  2. ENBREL [Suspect]
     Dosage: 50 MG, QWK
     Route: 058
  3. ENBREL [Suspect]
     Dosage: 50 MG WEEKLY
     Route: 058
     Dates: start: 20110404
  4. FORADIL COMBI [Concomitant]
     Indication: ASTHMA
     Dosage: 2 UNK, 2X/DAY
     Route: 065
     Dates: start: 2007

REACTIONS (13)
  - Blood pressure increased [Recovered/Resolved]
  - Hepatic enzyme increased [Recovered/Resolved]
  - Premature labour [Recovered/Resolved]
  - Accident at home [Recovering/Resolving]
  - Abortion [Recovered/Resolved]
  - Wound [Recovering/Resolving]
  - Local swelling [Not Recovered/Not Resolved]
  - Menstruation delayed [Not Recovered/Not Resolved]
  - Dyspnoea [Not Recovered/Not Resolved]
  - Depressed mood [Not Recovered/Not Resolved]
  - Inappropriate schedule of drug administration [Not Recovered/Not Resolved]
  - Ligament sprain [Recovering/Resolving]
  - Influenza [Unknown]
